FAERS Safety Report 19708450 (Version 1)
Quarter: 2021Q3

REPORT INFORMATION
  Report Type: Spontaneous
  Country: CN (occurrence: CN)
  Receive Date: 20210817
  Receipt Date: 20210817
  Transmission Date: 20211014
  Serious: Yes (Hospitalization)
  Sender: FDA-Public Use
  Company Number: CN-PFIZER INC-202100999937

PATIENT
  Age: 48 Year
  Sex: Male
  Weight: 83 kg

DRUGS (1)
  1. TAZOCIN [Suspect]
     Active Substance: PIPERACILLIN SODIUM\TAZOBACTAM SODIUM
     Indication: ANTI-INFECTIVE THERAPY
     Dosage: 4.5 G, THRICE A DAY (Q8H, EVERY 8 HOURS)
     Route: 041
     Dates: start: 20210601, end: 20210610

REACTIONS (2)
  - Diarrhoea [Recovered/Resolved]
  - Dysbiosis [Unknown]

NARRATIVE: CASE EVENT DATE: 20210609
